FAERS Safety Report 11119359 (Version 1)
Quarter: 2015Q2

REPORT INFORMATION
  Report Type: Spontaneous
  Country: US (occurrence: None)
  Receive Date: 20150515
  Receipt Date: 20150515
  Transmission Date: 20150821
  Serious: Yes (Other)
  Sender: FDA-Public Use
  Company Number: None

PATIENT
  Age: 66 Year
  Sex: Male
  Weight: 63.5 kg

DRUGS (4)
  1. LISINOPRIL. [Concomitant]
     Active Substance: LISINOPRIL
  2. BENZONATATE. [Concomitant]
     Active Substance: BENZONATATE
  3. TESTOSTERONE CYPIONATE. [Suspect]
     Active Substance: TESTOSTERONE CYPIONATE
     Indication: BLOOD TESTOSTERONE DECREASED
     Dosage: 0.5ML EVERY 6 DAYS INTRAMUSCULAR
     Route: 030
     Dates: start: 20150328, end: 20150328
  4. DIOVAN [Concomitant]
     Active Substance: VALSARTAN

REACTIONS (4)
  - Product quality issue [None]
  - Blood testosterone free decreased [None]
  - Drug ineffective [None]
  - Product substitution issue [None]

NARRATIVE: CASE EVENT DATE: 20150328
